FAERS Safety Report 24565144 (Version 2)
Quarter: 2024Q4

REPORT INFORMATION
  Report Type: Spontaneous
  Country: US (occurrence: US)
  Receive Date: 20241030
  Receipt Date: 20241112
  Transmission Date: 20250114
  Serious: No
  Sender: GLAND PHARMA LTD
  Company Number: US-GLANDPHARMA-US-2024GLNSPO00880

PATIENT

DRUGS (4)
  1. OXALIPLATIN [Suspect]
     Active Substance: OXALIPLATIN
     Indication: Neoplasm malignant
     Dosage: DILUTED IT 0.6 MG/ML AND RECEIVED IT FOR 30 MINUTES
  2. OXALIPLATIN [Suspect]
     Active Substance: OXALIPLATIN
  3. OXALIPLATIN [Suspect]
     Active Substance: OXALIPLATIN
  4. SODIUM CHLORIDE [Concomitant]
     Active Substance: SODIUM CHLORIDE
     Indication: Product used for unknown indication

REACTIONS (2)
  - Product preparation issue [Unknown]
  - Intercepted product administration error [Unknown]
